FAERS Safety Report 17742070 (Version 2)
Quarter: 2023Q2

REPORT INFORMATION
  Report Type: Spontaneous
  Country: GR (occurrence: GR)
  Receive Date: 20200504
  Receipt Date: 20230412
  Transmission Date: 20230721
  Serious: Yes (Hospitalization, Other)
  Sender: FDA-Public Use
  Company Number: GR-VIANEX-200400

PATIENT
  Age: 43 Year
  Sex: Male

DRUGS (11)
  1. MYCOPHENOLIC ACID [Suspect]
     Active Substance: MYCOPHENOLIC ACID
     Indication: IgA nephropathy
     Dosage: UNK
     Route: 065
  2. DEXAMETHASONE [Suspect]
     Active Substance: DEXAMETHASONE
     Indication: Haemophagocytic lymphohistiocytosis
     Dosage: 10 MILLIGRAM/SQ. METER, QD
     Route: 065
  3. DEXAMETHASONE [Suspect]
     Active Substance: DEXAMETHASONE
     Dosage: UNK
     Route: 065
  4. METHYLPREDNISOLONE [Suspect]
     Active Substance: METHYLPREDNISOLONE
     Indication: IgA nephropathy
     Dosage: 8 MILLIGRAM, QD DAILY
     Route: 065
  5. FILGRASTIM [Concomitant]
     Active Substance: FILGRASTIM
     Dosage: UNK
     Route: 065
  6. TEICOPLANIN [Concomitant]
     Active Substance: TEICOPLANIN
     Dosage: UNK
     Route: 065
  7. AMPHOTERICIN B [Concomitant]
     Active Substance: AMPHOTERICIN B
     Dosage: UNK
     Route: 065
  8. MEROPENEM [Concomitant]
     Active Substance: MEROPENEM
     Dosage: UNK
     Route: 065
  9. APIXABAN [Concomitant]
     Active Substance: APIXABAN
     Dosage: UNK
     Route: 065
  10. CEFTRIAXONE [Concomitant]
     Active Substance: CEFTRIAXONE
     Dosage: UNK
     Route: 065
  11. BISOPROLOL [Concomitant]
     Active Substance: BISOPROLOL
     Dosage: UNK
     Route: 065

REACTIONS (10)
  - Blood immunoglobulin M decreased [Recovered/Resolved]
  - Blood immunoglobulin G decreased [Recovering/Resolving]
  - Haemophagocytic lymphohistiocytosis [Recovered/Resolved]
  - Cytomegalovirus infection [Recovered/Resolved]
  - Leishmaniasis [Recovered/Resolved]
  - Encephalitis brain stem [Recovered/Resolved]
  - Listeriosis [Recovered/Resolved]
  - B-lymphocyte count decreased [Recovering/Resolving]
  - Secondary immunodeficiency [Unknown]
  - Off label use [Unknown]
